FAERS Safety Report 5940232-4 (Version None)
Quarter: 2008Q4

REPORT INFORMATION
  Report Type: 
  Country: None (occurrence: None)
  Receive Date: 20081031
  Receipt Date: 20081031
  Transmission Date: 20090506
  Serious: No
  Sender: FDA-Public Use
  Company Number: None

PATIENT
  Age: 58 Year

DRUGS (1)
  1. VARENICLINE [Suspect]
     Indication: SMOKING CESSATION THERAPY
     Dosage: 0.5 MG EVERY DAY PO
     Route: 048
     Dates: start: 20081007, end: 20081021

REACTIONS (6)
  - AGITATION [None]
  - ANXIETY [None]
  - COLD SWEAT [None]
  - INSOMNIA [None]
  - MUSCLE DISORDER [None]
  - RESPIRATORY DEPRESSION [None]
